FAERS Safety Report 10701850 (Version 1)
Quarter: 2015Q1

REPORT INFORMATION
  Report Type: Spontaneous
  Country: US (occurrence: US)
  Receive Date: 20150109
  Receipt Date: 20150109
  Transmission Date: 20150721
  Serious: No
  Sender: FDA-Public Use
  Company Number: US-GLAXOSMITHKLINE-US2014GSK046523

PATIENT
  Age: 66 Year
  Sex: Female

DRUGS (8)
  1. COMBIVENT [Concomitant]
     Active Substance: ALBUTEROL SULFATE\IPRATROPIUM BROMIDE
  2. SYMBICORT [Concomitant]
     Active Substance: BUDESONIDE\FORMOTEROL FUMARATE DIHYDRATE
  3. NEBULIZER (NAME UNKNOWN) [Concomitant]
  4. VENTOLIN HFA [Concomitant]
     Active Substance: ALBUTEROL SULFATE
  5. THYROID MEDICATION [Concomitant]
     Active Substance: UNSPECIFIED INGREDIENT
  6. PAIN MEDICATION [Concomitant]
     Active Substance: UNSPECIFIED INGREDIENT
  7. BREO ELLIPTA [Suspect]
     Active Substance: FLUTICASONE FUROATE\VILANTEROL TRIFENATATE
     Indication: CHRONIC OBSTRUCTIVE PULMONARY DISEASE
     Dosage: 2 PUFF(S), 1D
     Dates: start: 20140912
  8. BLOOD PRESSURE MEDICATION [Concomitant]
     Active Substance: UNSPECIFIED INGREDIENT

REACTIONS (2)
  - Drug dose omission [Not Recovered/Not Resolved]
  - Prescribed overdose [Not Recovered/Not Resolved]

NARRATIVE: CASE EVENT DATE: 20140912
